FAERS Safety Report 4507244-9 (Version None)
Quarter: 2004Q4

REPORT INFORMATION
  Report Type: 
  Country: None (occurrence: None)
  Receive Date: 20041025
  Receipt Date: 20040820
  Transmission Date: 20050328
  Serious: Yes (Death, Other)
  Sender: FDA-Public Use
  Company Number: US-JNJFOC-20040506353

PATIENT
  Age: 54 Year
  Sex: Male

DRUGS (6)
  1. REMICADE [Suspect]
     Indication: CROHN'S DISEASE
     Dosage: 350 MG, INTRAVENOUS
     Route: 042
     Dates: start: 20040619
  2. STEROIDS (CORTICOSTEROID NOS) [Suspect]
     Indication: CROHN'S DISEASE
  3. NYSTATIN [Concomitant]
  4. DIFLUCAN (FLUCONZOLE) [Concomitant]
  5. SOLU-MEDROL [Concomitant]
  6. ASACOL [Concomitant]

REACTIONS (1)
  - STAPHYLOCOCCAL SEPSIS [None]
